FAERS Safety Report 4311956-X (Version None)
Quarter: 2004Q1

REPORT INFORMATION
  Report Type: 
  Country: None (occurrence: None)
  Receive Date: 20040305
  Receipt Date: 20031203
  Transmission Date: 20041129
  Serious: Yes (Death, Other)
  Sender: FDA-Public Use
  Company Number: 200311432JP

PATIENT
  Age: 66 Year
  Sex: Male

DRUGS (1)
  1. ARAVA [Suspect]
     Route: 048

REACTIONS (2)
  - MYOCARDIAL INFARCTION [None]
  - SEPSIS [None]
